FAERS Safety Report 9547656 (Version 1)
Quarter: 2013Q3

REPORT INFORMATION
  Report Type: Spontaneous
  Country: US (occurrence: None)
  Receive Date: 20130701
  Receipt Date: 20130701
  Transmission Date: 20140515
  Serious: Yes (Disabling)
  Sender: FDA-Public Use
  Company Number: 391797

PATIENT
  Sex: Female

DRUGS (1)
  1. PAMIDRONATE DISODIUM [Suspect]
     Indication: PRODUCT USED FOR UNKNOWN INDICATION

REACTIONS (7)
  - Osteonecrosis of jaw [None]
  - Dysphagia [None]
  - Deformity [None]
  - Emotional distress [None]
  - Anxiety [None]
  - Life expectancy shortened [None]
  - Pain [None]
